FAERS Safety Report 6932664-2 (Version None)
Quarter: 2010Q3

REPORT INFORMATION
  Report Type: 
  Country: None (occurrence: None)
  Receive Date: 20100819
  Receipt Date: 20100802
  Transmission Date: 20110219
  Serious: Yes (Life-Threatening, Other)
  Sender: FDA-Public Use
  Company Number: GB-BAXTER-2010BH021572

PATIENT
  Age: 20 Year
  Sex: Female
  Weight: 65 kg

DRUGS (13)
  1. FORANE [Suspect]
     Indication: MAINTENANCE OF ANAESTHESIA
     Route: 065
  2. BUPIVACAINE HYDROCHLORIDE [Suspect]
     Indication: EPIDURAL ANAESTHESIA
     Route: 065
  3. BUPIVACAINE HYDROCHLORIDE [Suspect]
     Route: 065
  4. BUPIVACAINE HYDROCHLORIDE [Suspect]
     Route: 065
  5. FENTANYL CITRATE [Suspect]
     Indication: ANALGESIC THERAPY
     Route: 008
  6. FENTANYL CITRATE [Suspect]
     Route: 008
  7. LIDOCAINE [Suspect]
     Indication: EPIDURAL ANAESTHESIA
     Route: 065
  8. METOCLOPRAMIDE HYDROCHLORIDE, UNSPECIFIED [Suspect]
     Indication: PROPHYLAXIS
     Route: 042
  9. OXYTOCIN [Suspect]
     Indication: PRODUCT USED FOR UNKNOWN INDICATION
     Route: 040
  10. RANITIDINE [Suspect]
     Indication: PROPHYLAXIS
     Route: 042
  11. SODIUM CITRATE [Suspect]
     Indication: PROPHYLAXIS
     Route: 048
  12. SUXAMETHONIUM [Suspect]
     Indication: ANAESTHESIA
     Route: 065
  13. THIOPENTAL SODIUM [Suspect]
     Indication: ANAESTHESIA
     Route: 065

REACTIONS (11)
  - CARDIAC ARREST [None]
  - DRUG EXPOSURE DURING PREGNANCY [None]
  - ELECTROMECHANICAL DISSOCIATION [None]
  - HAEMORRHAGE [None]
  - HEART RATE INCREASED [None]
  - HYPOTENSION [None]
  - OXYGEN SATURATION DECREASED [None]
  - PULSE ABSENT [None]
  - RETAINED PLACENTA OR MEMBRANES [None]
  - TACHYCARDIA [None]
  - UTERINE INVERSION [None]
